FAERS Safety Report 5256005-4 (Version None)
Quarter: 2007Q1

REPORT INFORMATION
  Report Type: 
  Country: None (occurrence: None)
  Receive Date: 20070301
  Receipt Date: 20070214
  Transmission Date: 20070707
  Serious: Yes (Other)
  Sender: FDA-Public Use
  Company Number: ST-2007-009545

PATIENT
  Age: 58 Year
  Sex: Female
  Weight: 57.8 kg

DRUGS (1)
  1. OLMETEC [Suspect]
     Indication: ESSENTIAL HYPERTENSION
     Dosage: 20 GM QD PO
     Route: 048
     Dates: start: 20060816, end: 20070205

REACTIONS (1)
  - HEPATIC FUNCTION ABNORMAL [None]
